FAERS Safety Report 9600294 (Version 1)
Quarter: 2013Q4

REPORT INFORMATION
  Report Type: Spontaneous
  Country: US (occurrence: US)
  Receive Date: 20131004
  Receipt Date: 20131004
  Transmission Date: 20140711
  Serious: No
  Sender: FDA-Public Use
  Company Number: US-AMGEN-USASP2013034056

PATIENT
  Age: 45 Year
  Sex: Female

DRUGS (19)
  1. ENBREL [Suspect]
     Indication: PRODUCT USED FOR UNKNOWN INDICATION
     Dosage: 50 MG, UNK
     Route: 058
  2. PREDNISONE [Concomitant]
     Dosage: 20 MG, UNK
  3. LOESTRIN FE [Concomitant]
     Dosage: 1.5/30 UNK
  4. LISINOPRIL [Concomitant]
     Dosage: 30 MG, UNK
  5. OMEPRAZOLE [Concomitant]
     Dosage: 40 MG, UNK
  6. METFORMIN [Concomitant]
     Dosage: 750 MG, UNK
  7. NOVOLOG [Concomitant]
     Dosage: 100 ML, UNK
  8. ALBUTEROL                          /00139501/ [Concomitant]
     Dosage: 90 MUG, UNK
  9. LEVOTHYROXIN [Concomitant]
     Dosage: 175 MUG, UNK
  10. BUPROPION [Concomitant]
     Dosage: 150 MG, UNK
  11. VITAMIN D                          /00107901/ [Concomitant]
     Dosage: 5000 UNIT, UNK
  12. SPIRONOLACTON [Concomitant]
     Dosage: 25 MG, UNK
  13. METHOTREXATE [Concomitant]
     Dosage: 250/10 ML UNK
  14. CLARITIN                           /00917501/ [Concomitant]
     Dosage: 10 MG, UNK
  15. FISH OIL [Concomitant]
     Dosage: UNK
  16. FIBER [Concomitant]
     Dosage: UNK
  17. FOLIC ACID [Concomitant]
     Dosage: UNK
  18. MULTIVITOL [Concomitant]
     Dosage: UNK
  19. IRON PLUS                          /00292601/ [Concomitant]
     Dosage: 100 UNK, UNK

REACTIONS (1)
  - Bronchitis [Unknown]
